FAERS Safety Report 24250503 (Version 1)
Quarter: 2024Q3

REPORT INFORMATION
  Report Type: Spontaneous
  Country: US (occurrence: None)
  Receive Date: 20240826
  Receipt Date: 20240826
  Transmission Date: 20241017
  Serious: Yes (Death)
  Sender: ASTRAZENECA
  Company Number: 2024A187355

PATIENT
  Age: 48 Year
  Sex: Female

DRUGS (1)
  1. OSIMERTINIB [Suspect]
     Active Substance: OSIMERTINIB
     Indication: Bladder transitional cell carcinoma stage IV
     Route: 048

REACTIONS (7)
  - Malignant neoplasm progression [Fatal]
  - Bone cancer metastatic [Fatal]
  - Metastases to liver [Fatal]
  - Metastasis [Fatal]
  - Malignant ascites [Fatal]
  - Brain neoplasm malignant [Fatal]
  - Off label use [Unknown]
